FAERS Safety Report 5804554-X (Version None)
Quarter: 2008Q3

REPORT INFORMATION
  Report Type: 
  Country: None (occurrence: None)
  Receive Date: 20080707
  Receipt Date: 20080707
  Transmission Date: 20090109
  Serious: Yes (Other)
  Sender: FDA-Public Use
  Company Number: None

PATIENT
  Age: 50 Year
  Sex: Female
  Weight: 69.8539 kg

DRUGS (1)
  1. BUDEPRION XL 150MG TEVA [Suspect]
     Indication: DEPRESSION
     Dosage: 150 MG 1 DAILY PO
     Route: 048
     Dates: start: 20080615, end: 20080703

REACTIONS (1)
  - DRUG HYPERSENSITIVITY [None]
